FAERS Safety Report 9918854 (Version 2)
Quarter: 2014Q1

REPORT INFORMATION
  Report Type: Spontaneous
  Country: JP (occurrence: JP)
  Receive Date: 20140224
  Receipt Date: 20140224
  Transmission Date: 20141002
  Serious: Yes (Hospitalization, Other)
  Sender: FDA-Public Use
  Company Number: JP-PFIZER INC-2014037916

PATIENT
  Age: 94 Year
  Sex: Male

DRUGS (1)
  1. CABASER [Suspect]
     Dosage: UNK
     Route: 048

REACTIONS (1)
  - Cholangitis [Unknown]
